FAERS Safety Report 5025274-8 (Version None)
Quarter: 2006Q2

REPORT INFORMATION
  Report Type: 
  Country: None (occurrence: None)
  Receive Date: 20060426
  Receipt Date: 20060104
  Transmission Date: 20061013
  Serious: Yes (Other)
  Sender: FDA-Public Use
  Company Number: 2005155292

PATIENT
  Age: 30 Year
  Sex: Male

DRUGS (3)
  1. LYRICA [Suspect]
     Indication: NEUROPATHY PERIPHERAL
     Dosage: 150 MG (75 MG, 2 IN 1 D), ORAL
     Route: 048
     Dates: start: 20051107
  2. HYDROCHLOROTHIAZIDE [Concomitant]
  3. ULTRAM [Concomitant]

REACTIONS (1)
  - ERECTILE DYSFUNCTION [None]
